FAERS Safety Report 5593346-5 (Version None)
Quarter: 2008Q1

REPORT INFORMATION
  Report Type: 
  Country: None (occurrence: None)
  Receive Date: 20080116
  Receipt Date: 20080108
  Transmission Date: 20080703
  Serious: Yes (Hospitalization, Other)
  Sender: FDA-Public Use
  Company Number: JP-ASTRAZENECA-2007AP07091

PATIENT
  Age: 65 Year
  Sex: Male

DRUGS (14)
  1. MEROPEN [Suspect]
     Indication: MENINGITIS BACTERIAL
     Route: 042
     Dates: start: 20070730, end: 20070824
  2. MEROPEN [Suspect]
     Route: 042
     Dates: start: 20070825, end: 20070829
  3. LOXONIN [Suspect]
     Indication: HEADACHE
     Route: 048
     Dates: start: 20070801, end: 20070804
  4. TRYPTANOL [Suspect]
     Indication: DEPRESSION
     Route: 048
     Dates: start: 20070803, end: 20070822
  5. TERRANAS [Suspect]
     Indication: MIGRAINE
     Route: 048
     Dates: start: 20070820, end: 20070821
  6. HYALEIN [Concomitant]
     Indication: KERATITIS
     Route: 031
     Dates: start: 20070801
  7. SELBEX [Concomitant]
     Indication: GASTRITIS
     Route: 048
     Dates: start: 20070729, end: 20070729
  8. OMEPRAL [Concomitant]
     Indication: GASTRIC ULCER HAEMORRHAGE
     Route: 042
     Dates: start: 20070730, end: 20070802
  9. OMEPRAL [Concomitant]
     Route: 048
     Dates: start: 20070803, end: 20070822
  10. VOLTAREN [Concomitant]
     Indication: HEADACHE
     Route: 054
     Dates: start: 20070801
  11. LENDORMIN [Concomitant]
     Indication: INSOMNIA
     Route: 048
     Dates: start: 20070801, end: 20070829
  12. WHITE VASELINE [Concomitant]
     Indication: CHELATION THERAPY
     Route: 003
     Dates: start: 20070803, end: 20070808
  13. VOLTAREN [Concomitant]
     Indication: ARTHRALGIA
     Route: 048
     Dates: start: 20070805, end: 20070812
  14. DOGMATIL [Concomitant]
     Indication: DEPRESSION
     Route: 048
     Dates: start: 20070807, end: 20070829

REACTIONS (5)
  - CHOLESTASIS [None]
  - DRUG ERUPTION [None]
  - EOSINOPHILIA [None]
  - PYREXIA [None]
  - RENAL IMPAIRMENT [None]
